FAERS Safety Report 8930325 (Version 2)
Quarter: 2013Q1

REPORT INFORMATION
  Report Type: Spontaneous
  Country: US (occurrence: US)
  Receive Date: 20121128
  Receipt Date: 20130213
  Transmission Date: 20140127
  Serious: Yes (Other)
  Sender: FDA-Public Use
  Company Number: US-GLAXOSMITHKLINE-A1002906A

PATIENT
  Age: 21 Year
  Sex: Female

DRUGS (2)
  1. VENTOLIN [Suspect]
     Indication: PRODUCT USED FOR UNKNOWN INDICATION
     Dosage: 2PUFF SIX TIMES PER DAY
     Route: 055
     Dates: start: 20120828
  2. UNKNOWN [Concomitant]

REACTIONS (3)
  - Choking [Unknown]
  - Cough [Unknown]
  - Product quality issue [Unknown]
